FAERS Safety Report 19435205 (Version 1)
Quarter: 2021Q2

REPORT INFORMATION
  Report Type: Spontaneous
  Country: US (occurrence: US)
  Receive Date: 20210617
  Receipt Date: 20210617
  Transmission Date: 20210717
  Serious: Yes (Hospitalization, Other)
  Sender: FDA-Public Use
  Company Number: US-AUROBINDO-AUR-APL-2021-024850

PATIENT
  Age: 41 Year
  Sex: Male

DRUGS (2)
  1. IBUPROFEN. [Suspect]
     Active Substance: IBUPROFEN
     Indication: CHILLS
     Dosage: 400 MILLIGRAM, FOUR TIMES/DAY
     Route: 048
  2. IBUPROFEN. [Suspect]
     Active Substance: IBUPROFEN
     Indication: MALAISE

REACTIONS (15)
  - Thirst [Unknown]
  - Abdominal pain upper [Unknown]
  - Abdominal pain [Unknown]
  - Headache [Unknown]
  - Nausea [Recovered/Resolved]
  - Hiccups [Unknown]
  - Asthenia [Recovered/Resolved]
  - Vomiting [Unknown]
  - Myalgia [Unknown]
  - Insomnia [Unknown]
  - Renal tubular necrosis [Recovered/Resolved]
  - Glomerular vascular disorder [Recovered/Resolved]
  - Blood creatinine increased [Unknown]
  - Fatigue [Unknown]
  - Abdominal distension [Unknown]
